FAERS Safety Report 9940536 (Version 3)
Quarter: 2014Q1

REPORT INFORMATION
  Report Type: Spontaneous
  Country: JP (occurrence: JP)
  Receive Date: 20140303
  Receipt Date: 20140307
  Transmission Date: 20141002
  Serious: Yes (Death, Other)
  Sender: FDA-Public Use
  Company Number: JP-PFIZER INC-2014031229

PATIENT
  Age: 84 Year
  Sex: Male
  Weight: 49 kg

DRUGS (5)
  1. VFEND [Suspect]
     Indication: BRONCHOPULMONARY ASPERGILLOSIS
     Dosage: 150 MG, 2X/DAY
     Route: 042
     Dates: start: 20140123, end: 20140203
  2. VANCOMYCIN [Suspect]
     Indication: PNEUMONIA STAPHYLOCOCCAL
     Dosage: 1 G, 3X/DAY
     Route: 042
     Dates: start: 20140120, end: 20140128
  3. CANCIDAS [Suspect]
     Indication: BRONCHOPULMONARY ASPERGILLOSIS
     Dosage: 50 MG, 1X/DAY
     Route: 042
     Dates: start: 20140117, end: 20140123
  4. MEROPEN [Suspect]
     Indication: PNEUMONIA BACTERIAL
     Dosage: 1.0 G, 3X/DAY
     Route: 042
     Dates: start: 20140116, end: 20140122
  5. PAZUCROSS [Concomitant]
     Indication: PNEUMONIA BACTERIAL
     Dosage: 1000 MG, 1X/DAY
     Route: 042
     Dates: start: 20140122, end: 20140129

REACTIONS (4)
  - Respiratory failure [Fatal]
  - General physical health deterioration [Not Recovered/Not Resolved]
  - Renal impairment [Not Recovered/Not Resolved]
  - Hepatic function abnormal [Not Recovered/Not Resolved]
